FAERS Safety Report 11831761 (Version 1)
Quarter: 2015Q4

REPORT INFORMATION
  Report Type: Spontaneous
  Country: CN (occurrence: CN)
  Receive Date: 20151214
  Receipt Date: 20151214
  Transmission Date: 20160305
  Serious: Yes (Other)
  Sender: FDA-Public Use
  Company Number: ALCN2015CN007611

PATIENT

DRUGS (2)
  1. TOBRAMYCIN. [Suspect]
     Active Substance: TOBRAMYCIN
     Indication: POSTOPERATIVE CARE
     Dosage: UNK
     Route: 047
  2. DEXAMETHASONE PHOSPHATE [Concomitant]
     Active Substance: DEXAMETHASONE PHOSPHATE
     Indication: POSTOPERATIVE CARE
     Dosage: UNK GTT, Q2H
     Route: 047

REACTIONS (2)
  - Angle closure glaucoma [Recovered/Resolved]
  - Intraocular pressure increased [Recovered/Resolved]
